FAERS Safety Report 4678165-6 (Version None)
Quarter: 2005Q2

REPORT INFORMATION
  Report Type: 
  Country: None (occurrence: None)
  Receive Date: 20050601
  Receipt Date: 20050520
  Transmission Date: 20051028
  Serious: Yes (Death)
  Sender: FDA-Public Use
  Company Number: AR-NOVOPROD-244325

PATIENT
  Age: 42 Year
  Sex: Female

DRUGS (1)
  1. NOVOSEVEN [Suspect]
     Indication: GASTROINTESTINAL HAEMORRHAGE
     Dosage: 90 UG, BID
     Route: 042

REACTIONS (1)
  - CONCOMITANT DISEASE PROGRESSION [None]
